FAERS Safety Report 18948208 (Version 4)
Quarter: 2021Q2

REPORT INFORMATION
  Report Type: Report from Study
  Country: US (occurrence: US)
  Receive Date: 20210226
  Receipt Date: 20210609
  Transmission Date: 20210717
  Serious: Yes (Life-Threatening, Hospitalization, Disabling, Other)
  Sender: FDA-Public Use
  Company Number: US-GILEAD-2021-0514962

PATIENT
  Age: 61 Year
  Sex: Male

DRUGS (35)
  1. SALBUTAMOL [Concomitant]
     Active Substance: ALBUTEROL
  2. DEXTROMETHORPHAN HYDROBROMIDE AND GUAIFENESIN [Concomitant]
     Active Substance: DEXTROMETHORPHAN HYDROBROMIDE\GUAIFENESIN
  3. IOHEXOL [Concomitant]
     Active Substance: IOHEXOL
  4. MIDAZOLAM HYDROCHLORIDE. [Concomitant]
     Active Substance: MIDAZOLAM HYDROCHLORIDE
  5. PLACEBO [Suspect]
     Active Substance: UNSPECIFIED INGREDIENT
     Indication: COVID-19
     Dosage: UNK, ONCE
     Route: 042
     Dates: start: 20201217
  6. FUROSEMIDE. [Concomitant]
     Active Substance: FUROSEMIDE
  7. MELATONIN [Concomitant]
     Active Substance: MELATONIN
  8. PARACETAMOL [Concomitant]
     Active Substance: ACETAMINOPHEN
  9. BENZONATATE. [Concomitant]
     Active Substance: BENZONATATE
  10. HYPOCHLOROUS ACID [Concomitant]
     Active Substance: HYPOCHLOROUS ACID
  11. POTASSIUM CHLORIDE. [Concomitant]
     Active Substance: POTASSIUM CHLORIDE
  12. REMDESIVIR. [Suspect]
     Active Substance: REMDESIVIR
     Indication: COVID-19
     Dosage: UNK, QD
     Route: 042
     Dates: start: 20201217
  13. CYANOCOBALAMIN. [Concomitant]
     Active Substance: CYANOCOBALAMIN
  14. DOCUSATE SODIUM;SENNOSIDE A+B [Concomitant]
     Active Substance: DOCUSATE SODIUM\SENNOSIDES A AND B
  15. OXYCODONE [Concomitant]
     Active Substance: OXYCODONE
  16. TRAMADOL HYDROCHLORIDE. [Concomitant]
     Active Substance: TRAMADOL HYDROCHLORIDE
  17. CEFEPIME HYDROCHLORIDE. [Concomitant]
     Active Substance: CEFEPIME HYDROCHLORIDE
  18. FLUOXETINE [Concomitant]
     Active Substance: FLUOXETINE HYDROCHLORIDE
  19. MACROGOL 3350 [Concomitant]
     Active Substance: POLYETHYLENE GLYCOL 3350
  20. CEFIXIME. [Concomitant]
     Active Substance: CEFIXIME
  21. AZITHROMYCIN ANHYDROUS. [Concomitant]
     Active Substance: AZITHROMYCIN ANHYDROUS
  22. CARVEDILOL. [Concomitant]
     Active Substance: CARVEDILOL
  23. LISINOPRIL. [Concomitant]
     Active Substance: LISINOPRIL
  24. BLINDED INFLIXIMAB [Suspect]
     Active Substance: INFLIXIMAB
     Indication: COVID-19
     Dosage: UNK, ONCE
     Route: 042
     Dates: start: 20201217
  25. DEXAMETHASONE. [Concomitant]
     Active Substance: DEXAMETHASONE
  26. KETOTIFEN FUMARATE. [Concomitant]
     Active Substance: KETOTIFEN FUMARATE
  27. LIDOCAINE. [Concomitant]
     Active Substance: LIDOCAINE
  28. GABAPENTIN. [Concomitant]
     Active Substance: GABAPENTIN
  29. GADOBUTROL. [Concomitant]
     Active Substance: GADOBUTROL
  30. ONDANSETRON [Concomitant]
     Active Substance: ONDANSETRON
  31. OXYCODONE HYDROCHLORIDE. [Concomitant]
     Active Substance: OXYCODONE HYDROCHLORIDE
  32. OXYCODONE HYDROCHLORIDE;PARACETAMOL [Concomitant]
     Active Substance: ACETAMINOPHEN\OXYCODONE HYDROCHLORIDE
  33. SODIUM PICOSULFATE [Concomitant]
     Active Substance: SODIUM PICOSULFATE
  34. APIXABAN [Concomitant]
     Active Substance: APIXABAN
  35. DAPTOMYCIN. [Concomitant]
     Active Substance: DAPTOMYCIN

REACTIONS (4)
  - Post-traumatic pain [Recovering/Resolving]
  - Osteomyelitis acute [Not Recovered/Not Resolved]
  - Urinary tract infection staphylococcal [Recovering/Resolving]
  - Bacteraemia [Not Recovered/Not Resolved]

NARRATIVE: CASE EVENT DATE: 20210107
